FAERS Safety Report 6862619-8 (Version None)
Quarter: 2010Q3

REPORT INFORMATION
  Report Type: 
  Country: None (occurrence: None)
  Receive Date: 20100721
  Receipt Date: 20100709
  Transmission Date: 20110219
  Serious: Yes (Other)
  Sender: FDA-Public Use
  Company Number: US-BAYER-201020402NA

PATIENT
  Sex: Female
  Weight: 105 kg

DRUGS (18)
  1. MAGNEVIST [Suspect]
     Indication: PRODUCT USED FOR UNKNOWN INDICATION
  2. OMNISCAN [Suspect]
     Indication: PRODUCT USED FOR UNKNOWN INDICATION
  3. OPTIMARK [Suspect]
     Indication: PRODUCT USED FOR UNKNOWN INDICATION
  4. MULTIHANCE [Suspect]
     Indication: PRODUCT USED FOR UNKNOWN INDICATION
  5. PROHANCE [Suspect]
     Indication: PRODUCT USED FOR UNKNOWN INDICATION
  6. PHOSLO [Concomitant]
  7. COUMADIN [Concomitant]
  8. SENSIPAR [Concomitant]
  9. RENA-VITE [Concomitant]
  10. LASIX [Concomitant]
  11. ARANESP [Concomitant]
     Route: 042
  12. RENAGEL [Concomitant]
     Dosage: WITH MEALS
  13. METOPROLOL [Concomitant]
     Dates: start: 20090901
  14. VITAMIN D [Concomitant]
  15. PROGRAF [Concomitant]
     Dosage: TOTAL DAILY DOSE: 8 MG  UNIT DOSE: 1 MG
  16. MYCOPHENOLATE MOFETIL [Concomitant]
     Dosage: AS USED: 500 MG  UNIT DOSE: 500 MG
  17. EPOGEN [Concomitant]
     Dates: start: 20060901, end: 20090801
  18. IRON [Concomitant]
     Dates: start: 20060201, end: 20090801

REACTIONS (10)
  - ERYTHEMA [None]
  - FIBROSIS [None]
  - GENERAL PHYSICAL HEALTH DETERIORATION [None]
  - MOBILITY DECREASED [None]
  - NEPHROGENIC SYSTEMIC FIBROSIS [None]
  - PAIN [None]
  - PAIN IN EXTREMITY [None]
  - PAIN OF SKIN [None]
  - SKIN HYPERTROPHY [None]
  - SKIN PLAQUE [None]
